FAERS Safety Report 8577072-6 (Version None)
Quarter: 2012Q3

REPORT INFORMATION
  Report Type: 
  Country: None (occurrence: None)
  Receive Date: 20120807
  Receipt Date: 20120731
  Transmission Date: 20120928
  Serious: Yes (Hospitalization)
  Sender: FDA-Public Use
  Company Number: US-CELGENEUS-163-21660-12080191

PATIENT
  Sex: Female

DRUGS (4)
  1. CARBOPLATIN [Suspect]
     Indication: HEAD AND NECK CANCER
     Route: 065
  2. FLUID [Concomitant]
     Route: 041
     Dates: start: 20120726
  3. ABRAXANE [Suspect]
     Indication: HEAD AND NECK CANCER
     Route: 065
  4. CETUXIMAB [Suspect]
     Indication: HEAD AND NECK CANCER
     Dosage: 250 MILLIGRAM/SQ. METER
     Route: 041
     Dates: start: 20120618, end: 20120730

REACTIONS (2)
  - GASTRITIS [None]
  - HYPOMAGNESAEMIA [None]
